FAERS Safety Report 8576728-9 (Version None)
Quarter: 2012Q3

REPORT INFORMATION
  Report Type: 
  Country: None (occurrence: None)
  Receive Date: 20120807
  Receipt Date: 20120803
  Transmission Date: 20120928
  Serious: Yes (Death)
  Sender: FDA-Public Use
  Company Number: DE-GLAXOSMITHKLINE-D0076092A

PATIENT
  Sex: Male
  Weight: 80 kg

DRUGS (5)
  1. ARIXTRA [Suspect]
     Indication: CARDIAC MYXOMA
     Dosage: 5MG PER DAY
     Route: 058
     Dates: start: 20120601, end: 20120625
  2. MESTINON [Concomitant]
     Indication: MYASTHENIA GRAVIS
     Dosage: 180MG PER DAY
     Route: 048
  3. DIOVAN [Concomitant]
     Indication: HYPERTENSION
     Dosage: 80MG PER DAY
     Route: 048
  4. ESIDRIX [Concomitant]
     Indication: HYPERTENSION
     Dosage: 12.5MG PER DAY
     Route: 048
  5. DIGOXIN [Concomitant]
     Indication: ATRIAL FIBRILLATION
     Dosage: .2MG PER DAY
     Route: 048

REACTIONS (4)
  - CEREBRAL HAEMORRHAGE [None]
  - RHABDOMYOLYSIS [None]
  - APNOEA [None]
  - FALL [None]
